FAERS Safety Report 9686095 (Version 2)
Quarter: 2013Q4

REPORT INFORMATION
  Report Type: Spontaneous
  Country: None (occurrence: US)
  Receive Date: 20131113
  Receipt Date: 20131113
  Transmission Date: 20140711
  Serious: No
  Sender: FDA-Public Use
  Company Number: US-ALLERGAN-1213797US

PATIENT
  Age: 82 Year
  Sex: Male

DRUGS (4)
  1. COMBIGAN[R] [Suspect]
     Indication: IIIRD NERVE DISORDER
     Dosage: 2 GTT, BID
     Route: 047
     Dates: start: 201209
  2. LASIX                              /00032601/ [Concomitant]
     Indication: PRODUCT USED FOR UNKNOWN INDICATION
     Dosage: 40 MG, QD
     Route: 048
  3. AMLODIPINE [Concomitant]
     Indication: HYPERTENSION
     Dosage: 5 MG, QD
     Route: 048
  4. POTASSIUM [Concomitant]
     Indication: PRODUCT USED FOR UNKNOWN INDICATION
     Dosage: 10 MEQ, QD

REACTIONS (5)
  - Muscular weakness [Recovering/Resolving]
  - Flushing [Recovering/Resolving]
  - Foreign body sensation in eyes [Recovering/Resolving]
  - Blood pressure increased [Recovering/Resolving]
  - Eye irritation [Recovering/Resolving]
